FAERS Safety Report 7109091-0 (Version None)
Quarter: 2010Q4

REPORT INFORMATION
  Report Type: 
  Country: None (occurrence: None)
  Receive Date: 20101117
  Receipt Date: 20101108
  Transmission Date: 20110411
  Serious: Yes (Hospitalization)
  Sender: FDA-Public Use
  Company Number: JP-ASTRAZENECA-2010SE13509

PATIENT
  Age: 81 Year
  Sex: Female

DRUGS (14)
  1. TOPROL-XL [Suspect]
     Indication: HEART RATE INCREASED
     Route: 048
     Dates: start: 19990220, end: 20080101
  2. TOPROL-XL [Suspect]
     Route: 048
     Dates: start: 20080101
  3. TOPROL-XL [Suspect]
     Route: 048
     Dates: start: 20090901
  4. TOPROL-XL [Suspect]
     Route: 048
     Dates: start: 20100101
  5. TOPROL-XL [Suspect]
     Route: 048
     Dates: start: 20101102
  6. SYNTHROID [Concomitant]
  7. BONIVA [Concomitant]
  8. INSULIN [Concomitant]
  9. PREVACID [Concomitant]
  10. ASPIRIN [Concomitant]
  11. SIMVASTATIN [Concomitant]
  12. CALCIUM [Concomitant]
  13. INSULIN PUMP [Concomitant]
  14. ZOCOR [Concomitant]
     Dosage: 1/2 TABLET

REACTIONS (16)
  - ASTHENIA [None]
  - BLOOD GLUCOSE ABNORMAL [None]
  - BREATH HOLDING [None]
  - CHEST PAIN [None]
  - CHILLS [None]
  - DECREASED APPETITE [None]
  - DYSPEPSIA [None]
  - DYSPNOEA [None]
  - FATIGUE [None]
  - FEELING COLD [None]
  - NASOPHARYNGITIS [None]
  - OSTEOARTHRITIS [None]
  - PERIPHERAL COLDNESS [None]
  - RHEUMATOID ARTHRITIS [None]
  - SOMNOLENCE [None]
  - VASCULAR GRAFT [None]
